FAERS Safety Report 19479886 (Version 1)
Quarter: 2021Q3

REPORT INFORMATION
  Report Type: Spontaneous
  Country: GB (occurrence: GB)
  Receive Date: 20210701
  Receipt Date: 20210701
  Transmission Date: 20211014
  Serious: Yes (Hospitalization, Other)
  Sender: FDA-Public Use
  Company Number: GB-TEVA-2021-GB-1928678

PATIENT
  Age: 25 Year
  Sex: Male

DRUGS (9)
  1. PREDNISOLONE. [Suspect]
     Active Substance: PREDNISOLONE
     Indication: WARM TYPE HAEMOLYTIC ANAEMIA
     Dosage: 1 MG/KG DAILY; 1 MG/KG DAILY FOR 3 WEEKS, FOLLOWED BY A SLOW TAPER
     Route: 065
  2. INTRAVENOUS IMMUNOGLOBULIN [Suspect]
     Active Substance: HUMAN IMMUNOGLOBULIN G
     Indication: WARM TYPE HAEMOLYTIC ANAEMIA
     Dosage: 1G/KG
     Route: 042
  3. BORTEZOMIB. [Suspect]
     Active Substance: BORTEZOMIB
     Dosage: SECOND DOSE WAS GIVEN AFTER FOUR DAYS FROM THE FIRST DOSE
     Route: 065
  4. DEXAMETHASONE. [Concomitant]
     Active Substance: DEXAMETHASONE
     Indication: WARM TYPE HAEMOLYTIC ANAEMIA
     Route: 065
  5. MYCOPHENOLATE MOFETIL. [Concomitant]
     Active Substance: MYCOPHENOLATE MOFETIL
     Indication: IMMUNOSUPPRESSANT DRUG THERAPY
     Route: 065
  6. BORTEZOMIB. [Suspect]
     Active Substance: BORTEZOMIB
     Indication: WARM TYPE HAEMOLYTIC ANAEMIA
     Dosage: FIRST DOSE WAS GIVEN ON DAY 164.
     Route: 065
  7. DALTEPARIN [Concomitant]
     Active Substance: DALTEPARIN
     Indication: ANTICOAGULANT THERAPY
     Route: 065
  8. RITUXIMAB. [Suspect]
     Active Substance: RITUXIMAB
     Indication: WARM TYPE HAEMOLYTIC ANAEMIA
     Route: 065
  9. TACROLIMUS. [Concomitant]
     Active Substance: TACROLIMUS
     Indication: IMMUNOSUPPRESSANT DRUG THERAPY
     Route: 065

REACTIONS (4)
  - Drug ineffective [Unknown]
  - Neuralgia [Recovered/Resolved]
  - Neuropathy peripheral [Recovered/Resolved]
  - Intestinal pseudo-obstruction [Recovered/Resolved]
